FAERS Safety Report 8537464-8 (Version None)
Quarter: 2012Q3

REPORT INFORMATION
  Report Type: 
  Country: None (occurrence: None)
  Receive Date: 20120725
  Receipt Date: 20120711
  Transmission Date: 20120928
  Serious: Yes (Hospitalization)
  Sender: FDA-Public Use
  Company Number: JP-NAPPMUNDI-MAG-2012-0002238

PATIENT
  Age: 75 Year
  Sex: Female

DRUGS (2)
  1. OXYCODONE HCL [Suspect]
  2. OXYCODONE HCL [Suspect]
     Indication: BACK PAIN

REACTIONS (3)
  - DELIRIUM [None]
  - SOMNOLENCE [None]
  - ANURIA [None]
